FAERS Safety Report 10383790 (Version 1)
Quarter: 2014Q1

REPORT INFORMATION
  Report Type: Spontaneous
  Country: US (occurrence: None)
  Receive Date: 20140306
  Receipt Date: 20140306
  Transmission Date: 20141002
  Serious: Yes (Other)
  Sender: FDA-Public Use
  Company Number: 163-21880-13071766

PATIENT
  Age: 66 Year
  Sex: Male
  Weight: 108 kg

DRUGS (10)
  1. REVLIMID (LENALIDOMIDE) (25 MILLIGRAM, CAPSULES) [Suspect]
     Indication: LYMPHOMA
     Route: 048
     Dates: start: 201210
  2. CYMBALTA (DULOXETINE HYDROCHLORIDE) [Concomitant]
  3. DEXAMETHASONE [Concomitant]
  4. VENLAFAXINE HCL (VENLAFAXINE HYDROCHLORIDE) [Concomitant]
  5. LISINOPRIL [Concomitant]
  6. OXYCODONE HCL (OXYCODONE HYDROCHLORIDE) [Concomitant]
  7. ASPIR-TRIN (ACETYLSALICYLIC ACID) [Concomitant]
  8. COMPLETE MULTI VITAMIN (MULTIVITAMINS) [Concomitant]
  9. CALCIUM MAGNESIUM ZINC [Concomitant]
  10. RENAGEL (SEVELAMER HYDROCHLORIDE) [Concomitant]

REACTIONS (1)
  - Renal disorder [None]
